FAERS Safety Report 8259371-0 (Version None)
Quarter: 2012Q2

REPORT INFORMATION
  Report Type: 
  Country: None (occurrence: None)
  Receive Date: 20120404
  Receipt Date: 20120327
  Transmission Date: 20120825
  Serious: Yes (Hospitalization)
  Sender: FDA-Public Use
  Company Number: US-BAYER-2011-096194

PATIENT
  Age: 43 Year
  Sex: Female

DRUGS (10)
  1. YAZ [Suspect]
     Indication: PREMENSTRUAL SYNDROME
  2. MUSCLE RELAXANTS [Concomitant]
  3. BIO TEARS [Concomitant]
     Indication: DRY EYE
     Dosage: 4 PER DAY
  4. GLUCOSAMINE [Concomitant]
     Indication: UNEVALUABLE EVENT
     Dosage: UNK UNK, QD
  5. IBUPROFEN [Concomitant]
  6. MULTIVITE [Concomitant]
     Dosage: UNK UNK, QD
  7. ZOMIG [Concomitant]
     Dosage: 5 MG, UNK
  8. YAZ [Suspect]
     Indication: ACNE
     Dosage: UNK
     Route: 048
     Dates: start: 20090401, end: 20090901
  9. FISH OIL [Concomitant]
     Dosage: 1000 MG, QD
  10. CHONDROITIN [Concomitant]
     Indication: UNEVALUABLE EVENT
     Dosage: UNK UNK, QD

REACTIONS (7)
  - PULMONARY EMBOLISM [None]
  - GENERAL PHYSICAL HEALTH DETERIORATION [None]
  - EMOTIONAL DISTRESS [None]
  - PAIN [None]
  - INJURY [None]
  - SCAR [None]
  - ANXIETY [None]
